FAERS Safety Report 5798420-6 (Version None)
Quarter: 2008Q3

REPORT INFORMATION
  Report Type: 
  Country: None (occurrence: None)
  Receive Date: 20080701
  Receipt Date: 20080701
  Transmission Date: 20090109
  Serious: Yes (Death)
  Sender: FDA-Public Use
  Company Number: None

PATIENT

DRUGS (1)
  1. CHANTIX [Suspect]
     Dosage: TABLET

REACTIONS (6)
  - ANGER [None]
  - DEPRESSED MOOD [None]
  - MYOCARDIAL INFARCTION [None]
  - NIGHTMARE [None]
  - PALPITATIONS [None]
  - THROMBOSIS [None]
